FAERS Safety Report 4288385-0 (Version None)
Quarter: 2004Q1

REPORT INFORMATION
  Report Type: 
  Country: None (occurrence: None)
  Receive Date: 20040209
  Receipt Date: 20030924
  Transmission Date: 20041129
  Serious: Yes (Life-Threatening, Other)
  Sender: FDA-Public Use
  Company Number: US-GLAXOSMITHKLINE-A0427362A

PATIENT
  Age: 37 Year
  Sex: Male
  Weight: 81.8 kg

DRUGS (2)
  1. PAXIL [Suspect]
     Indication: DYSTHYMIC DISORDER
     Dosage: 30MG PER DAY
     Route: 048
     Dates: start: 20030601
  2. ALCOHOL [Suspect]
     Route: 048

REACTIONS (4)
  - DEPRESSED LEVEL OF CONSCIOUSNESS [None]
  - LOSS OF CONSCIOUSNESS [None]
  - MOTOR DYSFUNCTION [None]
  - SLEEP DISORDER [None]
